FAERS Safety Report 10510873 (Version 2)
Quarter: 2016Q2

REPORT INFORMATION
  Report Type: Spontaneous
  Country: US (occurrence: US)
  Receive Date: 20141010
  Receipt Date: 20160413
  Transmission Date: 20160815
  Serious: Yes (Hospitalization, Other)
  Sender: FDA-Public Use
  Company Number: US-SA-2014SA137506

PATIENT
  Age: 70 Year
  Sex: Male

DRUGS (3)
  1. MULTAQ [Suspect]
     Active Substance: DRONEDARONE
     Route: 065
  2. MULTAQ [Suspect]
     Active Substance: DRONEDARONE
     Route: 065
     Dates: start: 2013
  3. MULTAQ [Suspect]
     Active Substance: DRONEDARONE
     Route: 065

REACTIONS (2)
  - Atrial fibrillation [Unknown]
  - Renal impairment [Unknown]
